FAERS Safety Report 5123020-0 (Version None)
Quarter: 2006Q4

REPORT INFORMATION
  Report Type: 
  Country: None (occurrence: None)
  Receive Date: 20061009
  Receipt Date: 20060927
  Transmission Date: 20070319
  Serious: Yes (Hospitalization)
  Sender: FDA-Public Use
  Company Number: GB-ROCHE-465720

PATIENT
  Age: 24 Year
  Sex: Female
  Weight: 54 kg

DRUGS (6)
  1. KYTRIL [Suspect]
     Indication: DRUG USE FOR UNKNOWN INDICATION
     Route: 042
     Dates: start: 20060831, end: 20060831
  2. ATRACURIUM BESYLATE [Concomitant]
     Route: 042
     Dates: start: 20060831, end: 20060831
  3. FENTANYL [Concomitant]
     Route: 042
     Dates: start: 20060831, end: 20060831
  4. MORPHINE [Concomitant]
  5. PARECOXIB SODIUM [Concomitant]
     Route: 042
     Dates: start: 20060831, end: 20060831
  6. PROPOFOL [Concomitant]
     Route: 042
     Dates: start: 20060831, end: 20060831

REACTIONS (5)
  - DEPRESSED LEVEL OF CONSCIOUSNESS [None]
  - EYE ROLLING [None]
  - MIOSIS [None]
  - OCULOGYRATION [None]
  - TREMOR [None]
